FAERS Safety Report 6696776-3 (Version None)
Quarter: 2010Q2

REPORT INFORMATION
  Report Type: 
  Country: None (occurrence: None)
  Receive Date: 20100426
  Receipt Date: 20100415
  Transmission Date: 20101027
  Serious: Yes (Hospitalization)
  Sender: FDA-Public Use
  Company Number: US-BAXTER-2010BH008973

PATIENT
  Sex: Female

DRUGS (1)
  1. DIANEAL [Suspect]
     Indication: PERITONEAL DIALYSIS
     Route: 033
     Dates: end: 20100401

REACTIONS (4)
  - FUNGAL PERITONITIS [None]
  - INCORRECT STORAGE OF DRUG [None]
  - PERITONITIS BACTERIAL [None]
  - POOR PERSONAL HYGIENE [None]
